FAERS Safety Report 17362269 (Version 1)
Quarter: 2020Q1

REPORT INFORMATION
  Report Type: Spontaneous
  Country: DE (occurrence: DE)
  Receive Date: 20200203
  Receipt Date: 20200203
  Transmission Date: 20200409
  Serious: Yes (Hospitalization)
  Sender: FDA-Public Use
  Company Number: DE-JNJFOC-20200137854

PATIENT
  Age: 82 Year
  Sex: Female
  Weight: 71.6 kg

DRUGS (6)
  1. NOVAMINSULFON [Concomitant]
     Active Substance: METAMIZOLE
     Dosage: UNK UNK, PRN
     Route: 048
  2. RIVAROXABAN [Suspect]
     Active Substance: RIVAROXABAN
     Indication: ATRIAL FIBRILLATION
     Dosage: 20 MG, QD
     Route: 048
     Dates: start: 2015, end: 2018
  3. DOXYCYCLINE. [Concomitant]
     Active Substance: DOXYCYCLINE
     Indication: ERYTHEMA
     Dosage: UNK
     Route: 065
     Dates: start: 201807
  4. LUTEIN BIO COMPLEX [DIETARY SUPPLEMENT] [Suspect]
     Active Substance: DIETARY SUPPLEMENT
     Indication: PRODUCT USED FOR UNKNOWN INDICATION
     Route: 065
  5. BISOPROLOL [Concomitant]
     Active Substance: BISOPROLOL
     Dosage: 5 MG, QD
     Route: 048
  6. CANDESARTAN. [Concomitant]
     Active Substance: CANDESARTAN
     Dosage: 4 MG, QD
     Route: 048

REACTIONS (3)
  - Contusion [Recovered/Resolved]
  - Drug interaction [Recovered/Resolved]
  - Drug level increased [Recovered/Resolved]

NARRATIVE: CASE EVENT DATE: 20180719
